FAERS Safety Report 7572476-2 (Version None)
Quarter: 2011Q2

REPORT INFORMATION
  Report Type: 
  Country: None (occurrence: None)
  Receive Date: 20110625
  Receipt Date: 20110617
  Transmission Date: 20111010
  Serious: Yes (Death, Other)
  Sender: FDA-Public Use
  Company Number: PHHY2011KR54725

PATIENT
  Age: 57 Month

DRUGS (13)
  1. METHOTREXATE [Concomitant]
     Indication: STEM CELL TRANSPLANT
     Dosage: 15 MG/M2, UNK
  2. ETOPOSIDE [Concomitant]
     Dosage: UNK
  3. LEUCOVORIN CALCIUM [Concomitant]
     Dosage: 15 MG/M2, UNK
  4. CISPLATIN [Concomitant]
     Dosage: UNK
  5. DOXORUBICIN HCL [Concomitant]
     Dosage: UNK
  6. MELPHALAN HYDROCHLORIDE [Concomitant]
     Dosage: UNK
  7. CYCLOSPORINE [Suspect]
     Indication: STEM CELL TRANSPLANT
     Dosage: 150-300 NG/ML
  8. NEUPOGEN [Concomitant]
     Dosage: 5-10 MG/KG ONCE DAILY
  9. CYCLOPHOSPHAMIDE [Concomitant]
     Dosage: 60 MG/KG, UNK
  10. FLUDARABINE PHOSPHATE [Concomitant]
     Dosage: 30 MG/M2, UNK
  11. THIOTEPA [Concomitant]
     Dosage: UNK
  12. CARBOPLATIN [Concomitant]
     Dosage: UNK
  13. IFOSFAMIDE [Concomitant]
     Dosage: UNK

REACTIONS (3)
  - CHRONIC GRAFT VERSUS HOST DISEASE [None]
  - ACUTE GRAFT VERSUS HOST DISEASE [None]
  - NEOPLASM MALIGNANT [None]
